FAERS Safety Report 10824831 (Version 1)
Quarter: 2015Q1

REPORT INFORMATION
  Report Type: Report from Study
  Country: US (occurrence: US)
  Receive Date: 20150219
  Receipt Date: 20150219
  Transmission Date: 20150721
  Serious: No
  Sender: FDA-Public Use
  Company Number: US-ABBVIE-14K-163-1318507-00

PATIENT
  Age: 78 Year
  Sex: Female
  Weight: 44.04 kg

DRUGS (5)
  1. HUMIRA [Suspect]
     Active Substance: ADALIMUMAB
     Indication: CROHN^S DISEASE
     Route: 065
     Dates: start: 2007
  2. HYOSCYAMINE [Concomitant]
     Active Substance: HYOSCYAMINE
     Indication: CROHN^S DISEASE
  3. LOMOTIL [Concomitant]
     Active Substance: ATROPINE SULFATE\DIPHENOXYLATE HYDROCHLORIDE
     Indication: DIARRHOEA
  4. HYOSCYAMINE [Concomitant]
     Active Substance: HYOSCYAMINE
     Indication: COLITIS ULCERATIVE
  5. HUMIRA [Suspect]
     Active Substance: ADALIMUMAB
     Indication: COLITIS ULCERATIVE

REACTIONS (2)
  - Rib fracture [Not Recovered/Not Resolved]
  - Rib fracture [Unknown]

NARRATIVE: CASE EVENT DATE: 20141130
